FAERS Safety Report 6010587-3 (Version None)
Quarter: 2008Q4

REPORT INFORMATION
  Report Type: 
  Country: None (occurrence: None)
  Receive Date: 20081218
  Receipt Date: 20081209
  Transmission Date: 20090506
  Serious: Yes (Hospitalization)
  Sender: FDA-Public Use
  Company Number: US-BIOGENIDEC-2008BI028081

PATIENT
  Age: 58 Year
  Sex: Female

DRUGS (1)
  1. TYSABRI [Suspect]
     Indication: MULTIPLE SCLEROSIS
     Route: 042
     Dates: start: 20080129

REACTIONS (7)
  - ABASIA [None]
  - ARTHRITIS [None]
  - ASTHENIA [None]
  - NASOPHARYNGITIS [None]
  - SWELLING [None]
  - SYNOVIAL CYST [None]
  - URINARY TRACT INFECTION [None]
